FAERS Safety Report 14312947 (Version 1)
Quarter: 2017Q4

REPORT INFORMATION
  Report Type: Spontaneous
  Country: PT (occurrence: PT)
  Receive Date: 20171221
  Receipt Date: 20171221
  Transmission Date: 20180321
  Serious: Yes (Other)
  Sender: FDA-Public Use
  Company Number: PT-CIPLA LTD.-2017PT24813

PATIENT

DRUGS (2)
  1. FINASTERIDE. [Suspect]
     Active Substance: FINASTERIDE
     Dosage: 10 MG, QD, FOR 5 DAYS
     Route: 048
  2. PROVERA [Suspect]
     Active Substance: MEDROXYPROGESTERONE ACETATE
     Dosage: UNK
     Route: 065

REACTIONS (4)
  - Accidental overdose [Unknown]
  - Drug dispensing error [Unknown]
  - No adverse event [Unknown]
  - Wrong drug administered [Unknown]
